FAERS Safety Report 19980169 (Version 5)
Quarter: 2021Q4

REPORT INFORMATION
  Report Type: Spontaneous
  Country: US (occurrence: US)
  Receive Date: 20211021
  Receipt Date: 20211229
  Transmission Date: 20220304
  Serious: Yes (Hospitalization, Other)
  Sender: FDA-Public Use
  Company Number: US-PFIZER INC-202101384225

PATIENT
  Age: 81 Year
  Sex: Female
  Weight: 81.633 kg

DRUGS (3)
  1. IBRANCE [Suspect]
     Active Substance: PALBOCICLIB
     Indication: Breast cancer metastatic
     Dosage: 75 MG, CYCLIC (ONCE A DAY FOR 21 DAYS-7DAYS OFF+REPEAT)
     Dates: start: 20190507
  2. FULVESTRANT [Concomitant]
     Active Substance: FULVESTRANT
     Dosage: UNK, MONTHLY
     Dates: start: 20190507
  3. ZOMETA [Concomitant]
     Active Substance: ZOLEDRONIC ACID
     Dosage: UNK, (QUATERLY)
     Dates: start: 2006

REACTIONS (5)
  - Uterine infection [Recovered/Resolved]
  - Sepsis [Recovered/Resolved]
  - Hepatic infection [Unknown]
  - Kidney infection [Unknown]
  - Pyrexia [Unknown]

NARRATIVE: CASE EVENT DATE: 20210804
